FAERS Safety Report 9251592 (Version 1)
Quarter: 2013Q1

REPORT INFORMATION
  Report Type: Spontaneous
  Country: US (occurrence: None)
  Receive Date: 20130305
  Receipt Date: 20130305
  Transmission Date: 20140127
  Serious: Yes (Other)
  Sender: FDA-Public Use
  Company Number: 163-21880-12100469

PATIENT
  Age: 63 Year
  Sex: Female

DRUGS (10)
  1. REVLIMID [Suspect]
     Indication: PLASMA CELL MYELOMA
     Dosage: 1 IN 1 D
     Route: 048
     Dates: start: 201203
  2. LANTUS (INSULIN GLARGINE) [Concomitant]
  3. GABAPENTIN (GABAPENTIN) [Concomitant]
  4. CLINDAMYCIN (CLINDAMYCIN) [Concomitant]
  5. AMOXICILLIN (AMOXICILLIN) [Concomitant]
  6. ACETAMINOPHEN + CODEINE (GALENIC / PARACETAMOL / CODEINE) [Concomitant]
  7. LISINOPRIL (LISINOPRIL) [Concomitant]
  8. ACYCLOVIR (ACICLOVIR) (ACICLOVIR) [Concomitant]
  9. NEO/ POLY/ GRAM (NEOSPORIN EYE AND EAR SOLUTION) (SOLUTION) [Concomitant]
  10. CYCLOBENZAPRINE (CYCLOBENZAPRINE) [Concomitant]

REACTIONS (1)
  - Neutropenia [None]
